FAERS Safety Report 8399384-1 (Version None)
Quarter: 2012Q1

REPORT INFORMATION
  Report Type: 
  Country: None (occurrence: None)
  Receive Date: 20120323
  Receipt Date: 20111220
  Transmission Date: 20120608
  Serious: Yes (Other)
  Sender: FDA-Public Use
  Company Number: 163-21880-11020642

PATIENT
  Age: 74 Year
  Sex: Male
  Weight: 99.3377 kg

DRUGS (16)
  1. SENNA (SENNA) [Concomitant]
  2. PANTOPRAZOLE [Concomitant]
  3. ACYCLOVIR [Concomitant]
  4. HYDROCODONE-ACETAMINOPHEN (REMEDEINE) [Concomitant]
  5. POTASSIUM CHLORIDE [Concomitant]
  6. PROCHLORPERAZINE MALEATE [Concomitant]
  7. PYRIDOXINE HYDROCHLORIDE [Concomitant]
  8. METOPROLOL XL (METOPROLOL) [Concomitant]
  9. DEXAMETHASONE [Concomitant]
  10. REVLIMID [Suspect]
     Indication: MULTIPLE MYELOMA
     Dosage: 25 MG, 1 IN 1 D, PO
     Route: 048
     Dates: start: 20080401, end: 20090921
  11. ROBITUSSIN AC (ROBITUSSIN A-C) [Concomitant]
  12. VELCADE [Concomitant]
  13. CYCLOPHOSPHAMIDE [Concomitant]
  14. AMLODIPINE [Concomitant]
  15. FOLIC ACID [Concomitant]
  16. HYZAAR [Concomitant]

REACTIONS (4)
  - BONE MARROW FAILURE [None]
  - FATIGUE [None]
  - PNEUMONIA [None]
  - HAEMOGLOBIN DECREASED [None]
